FAERS Safety Report 24632433 (Version 1)
Quarter: 2024Q4

REPORT INFORMATION
  Report Type: Spontaneous
  Country: US (occurrence: US)
  Receive Date: 20241118
  Receipt Date: 20241118
  Transmission Date: 20250115
  Serious: No
  Sender: AMGEN
  Company Number: US-AMGEN-USASP2024222304

PATIENT
  Age: 13 Year
  Sex: Male

DRUGS (3)
  1. PREDNISONE [Suspect]
     Active Substance: PREDNISONE
     Indication: Dermatitis atopic
     Dosage: UNK, TAPER
     Route: 065
  2. DUPILUMAB [Concomitant]
     Active Substance: DUPILUMAB
     Indication: Dermatitis atopic
     Dosage: 400 MILLIGRAM
     Route: 065
  3. DUPILUMAB [Concomitant]
     Active Substance: DUPILUMAB
     Dosage: 200 MILLIGRAM, Q2WK
     Route: 065

REACTIONS (3)
  - Dermatitis atopic [Unknown]
  - Dermatitis psoriasiform [Unknown]
  - Eosinophilia [Unknown]

NARRATIVE: CASE EVENT DATE: 20240101
